FAERS Safety Report 26058970 (Version 1)
Quarter: 2025Q4

REPORT INFORMATION
  Report Type: Spontaneous
  Country: US (occurrence: US)
  Receive Date: 20251118
  Receipt Date: 20251118
  Transmission Date: 20260118
  Serious: No
  Sender: COLLEGIUM PHARMACEUTICAL
  Company Number: US-COLLEGIUM PHARMACEUTICAL, INC.-20251002652

PATIENT

DRUGS (3)
  1. BELBUCA [Suspect]
     Active Substance: BUPRENORPHINE HYDROCHLORIDE
     Indication: Back pain
     Dosage: 75 MICROGRAM, BID (WITH 300 MCG)
     Route: 002
     Dates: start: 20250401
  2. BELBUCA [Suspect]
     Active Substance: BUPRENORPHINE HYDROCHLORIDE
     Dosage: 300 MICROGRAM, BID (WITH 75 MCG)
     Route: 002
     Dates: start: 20250401
  3. CELEBREX [Concomitant]
     Active Substance: CELECOXIB
     Indication: Pain management
     Dosage: 200 MILLIGRAM, QD
     Route: 048

REACTIONS (2)
  - Temporomandibular pain and dysfunction syndrome [Not Recovered/Not Resolved]
  - Off label use [Not Recovered/Not Resolved]

NARRATIVE: CASE EVENT DATE: 20250401
